FAERS Safety Report 18589136 (Version 1)
Quarter: 2020Q4

REPORT INFORMATION
  Report Type: Spontaneous
  Country: BE (occurrence: BE)
  Receive Date: 20201208
  Receipt Date: 20201208
  Transmission Date: 20210114
  Serious: Yes (Death)
  Sender: FDA-Public Use
  Company Number: BE-JNJFOC-20201153396

PATIENT
  Age: 82 Year
  Sex: Male

DRUGS (1)
  1. DUROGESIC [Suspect]
     Active Substance: FENTANYL
     Indication: PRODUCT USED FOR UNKNOWN INDICATION
     Dosage: 3.5 YEARS AGO
     Route: 065

REACTIONS (5)
  - Death [Fatal]
  - Nausea [Unknown]
  - Malaise [Unknown]
  - Off label use [Unknown]
  - Wrong technique in product usage process [Unknown]
